FAERS Safety Report 8394817-9 (Version None)
Quarter: 2012Q2

REPORT INFORMATION
  Report Type: 
  Country: None (occurrence: None)
  Receive Date: 20120525
  Receipt Date: 20120525
  Transmission Date: 20120825
  Serious: Yes (Life-Threatening, Disabling, Other)
  Sender: FDA-Public Use
  Company Number: None

PATIENT
  Sex: Male
  Weight: 87.0906 kg

DRUGS (1)
  1. CLINDAMYCIN HCL [Suspect]
     Indication: ORAL INFECTION
     Dosage: CAPSULE 3X DAILY PO
     Route: 048
     Dates: start: 20111028, end: 20111104

REACTIONS (6)
  - TREMOR [None]
  - VOMITING [None]
  - ABDOMINAL PAIN UPPER [None]
  - RASH [None]
  - MUSCLE ATROPHY [None]
  - DIARRHOEA [None]
